FAERS Safety Report 11059330 (Version 2)
Quarter: 2015Q4

REPORT INFORMATION
  Report Type: Report from Study
  Country: DE (occurrence: DE)
  Receive Date: 20150423
  Receipt Date: 20151015
  Transmission Date: 20160304
  Serious: Yes (Hospitalization)
  Sender: FDA-Public Use
  Company Number: DE-OTSUKA-US-2014-12960

PATIENT

DRUGS (8)
  1. ARIPIPRAZOLE. [Concomitant]
     Active Substance: ARIPIPRAZOLE
     Indication: SCHIZOPHRENIA, PARANOID TYPE
     Dosage: 20 MG
     Route: 048
     Dates: start: 20131101, end: 20140902
  2. METFORMIN [Concomitant]
     Active Substance: METFORMIN HYDROCHLORIDE
     Indication: TYPE 2 DIABETES MELLITUS
     Dosage: 500 MG
     Route: 048
     Dates: start: 201308
  3. ARIPIPRAZOLE. [Suspect]
     Active Substance: ARIPIPRAZOLE
     Indication: SCHIZOPHRENIA, PARANOID TYPE
     Dosage: 400 MG, UNK
     Route: 030
     Dates: start: 20140819
  4. CIATYL-Z [Concomitant]
     Indication: SCHIZOPHRENIA, PARANOID TYPE
     Dosage: 25 MG
     Route: 048
     Dates: start: 20131101, end: 20140819
  5. CIATYL-Z  DEPOT [Concomitant]
     Indication: SCHIZOPHRENIA, PARANOID TYPE
     Dosage: 200 MG, EVERY 2 WEEKS
     Route: 030
     Dates: start: 20131101, end: 20140819
  6. SIMVASTATIN. [Concomitant]
     Active Substance: SIMVASTATIN
     Indication: HYPERCHOLESTEROLAEMIA
     Dosage: 20 MG
     Route: 048
     Dates: start: 200911
  7. CIATYL-Z [Concomitant]
     Dosage: 50 MG
     Route: 048
     Dates: start: 20140907
  8. CLOPIXOL [Concomitant]
     Active Substance: ZUCLOPENTHIXOL ACETATE
     Indication: SCHIZOPHRENIA, PARANOID TYPE
     Dosage: 50 MG, QD
     Route: 065
     Dates: start: 201409, end: 201410

REACTIONS (2)
  - Suicidal ideation [Recovered/Resolved]
  - Depression [Recovered/Resolved]

NARRATIVE: CASE EVENT DATE: 20140906
